FAERS Safety Report 13252105 (Version 2)
Quarter: 2017Q3

REPORT INFORMATION
  Report Type: Spontaneous
  Country: US (occurrence: US)
  Receive Date: 20170220
  Receipt Date: 20170706
  Transmission Date: 20171127
  Serious: No
  Sender: FDA-Public Use
  Company Number: US-GLAXOSMITHKLINE-US2017023051

PATIENT
  Age: 65 Year
  Sex: Male

DRUGS (21)
  1. AMLODIPINE [Concomitant]
     Active Substance: AMLODIPINE BESYLATE
  2. ASPIRIN. [Concomitant]
     Active Substance: ASPIRIN
  3. DUONEB [Concomitant]
     Active Substance: ALBUTEROL SULFATE\IPRATROPIUM BROMIDE
  4. ACCOLATE [Concomitant]
     Active Substance: ZAFIRLUKAST
  5. CARVEDILOL. [Concomitant]
     Active Substance: CARVEDILOL
  6. OXYCODONE [Concomitant]
     Active Substance: OXYCODONE
  7. PENTOXIFYLLINE. [Concomitant]
     Active Substance: PENTOXIFYLLINE
  8. PLAVIX [Concomitant]
     Active Substance: CLOPIDOGREL BISULFATE
  9. BREO ELLIPTA [Suspect]
     Active Substance: FLUTICASONE FUROATE\VILANTEROL TRIFENATATE
     Indication: ASTHMA
  10. LOSARTAN. [Concomitant]
     Active Substance: LOSARTAN
  11. CLONAZEPAM. [Concomitant]
     Active Substance: CLONAZEPAM
  12. NITROGLYCERIN SUBLINGUAL SPRAY [Concomitant]
  13. GLUCOTROL [Concomitant]
     Active Substance: GLIPIZIDE
  14. INVOKANA [Concomitant]
     Active Substance: CANAGLIFLOZIN
  15. MORPHINE [Concomitant]
     Active Substance: MORPHINE
  16. MUCOMYST [Concomitant]
     Active Substance: ACETYLCYSTEINE
  17. ROPINIROLE. [Concomitant]
     Active Substance: ROPINIROLE
  18. ISOSORBIDE. [Concomitant]
     Active Substance: ISOSORBIDE
  19. BREO ELLIPTA [Suspect]
     Active Substance: FLUTICASONE FUROATE\VILANTEROL TRIFENATATE
     Indication: CHRONIC OBSTRUCTIVE PULMONARY DISEASE
     Dosage: 1 PUFF(S), QD
     Route: 055
     Dates: start: 20170112, end: 20170216
  20. HYDROCHLOROTHIAZIDE + LOSARTAN [Concomitant]
     Active Substance: HYDROCHLOROTHIAZIDE\LOSARTAN
  21. PROVENTIL [Concomitant]
     Active Substance: ALBUTEROL

REACTIONS (3)
  - Product use issue [Unknown]
  - Bronchospasm [Unknown]
  - Dyspnoea [Recovered/Resolved]

NARRATIVE: CASE EVENT DATE: 201701
